FAERS Safety Report 26100284 (Version 1)
Quarter: 2025Q4

REPORT INFORMATION
  Report Type: Spontaneous
  Country: US (occurrence: US)
  Receive Date: 20251128
  Receipt Date: 20251128
  Transmission Date: 20260118
  Serious: Yes (Hospitalization, Other)
  Sender: DR REDDYS
  Company Number: US-DRL-USA-USA/2025/11/017882

PATIENT
  Age: 16 Year
  Sex: Male

DRUGS (4)
  1. LURASIDONE [Suspect]
     Active Substance: LURASIDONE
     Indication: Psychotic disorder
  2. FLUPHENAZINE [Suspect]
     Active Substance: FLUPHENAZINE
     Indication: Psychotic disorder
  3. PALIPERIDONE [Concomitant]
     Active Substance: PALIPERIDONE
     Indication: Mood swings
  4. PALIPERIDONE [Concomitant]
     Active Substance: PALIPERIDONE
     Indication: Irritability

REACTIONS (2)
  - Psychotic disorder [Unknown]
  - Extrapyramidal disorder [Unknown]
